FAERS Safety Report 9147081 (Version 1)
Quarter: 2013Q1

REPORT INFORMATION
  Report Type: Spontaneous
  Country: SG (occurrence: None)
  Receive Date: 20130131
  Receipt Date: 20130131
  Transmission Date: 20140127
  Serious: Yes (Death)
  Sender: FDA-Public Use
  Company Number: FK201300184

PATIENT
  Age: 54 Year
  Sex: Male

DRUGS (5)
  1. DEXAMETHASONE [Suspect]
     Indication: PRODUCT USED FOR UNKNOWN INDICATION
     Dosage: UNKNOWN,  ORAL?UNKNOWN  -  UNKNOWN
     Route: 048
  2. TEMOZOLOMIDE [Suspect]
     Dosage: 75 MG/M2,  PER DAY,  ORAL?UNKNOWN  -  UNKNOWN
     Route: 048
  3. SULFAMETHOXAZOLE [Suspect]
     Dosage: UNKNOWN,  UNKNOWN,  UNKNOWN?UNKNOWN  -  UNKNOWN
  4. TRIMETHOPRIM [Suspect]
     Dosage: UNKNOWN,  UNKNOWN,  UNKNOWN?UNKNOWN  -  UNKNOWN
  5. FLUCONAZOLE (FLUCONAZOLE) [Concomitant]

REACTIONS (5)
  - Cryptococcosis [None]
  - Headache [None]
  - Dysarthria [None]
  - Gait disturbance [None]
  - Hemiparesis [None]
